FAERS Safety Report 4863873-4 (Version None)
Quarter: 2005Q4

REPORT INFORMATION
  Report Type: 
  Country: None (occurrence: None)
  Receive Date: 20051222
  Receipt Date: 20051031
  Transmission Date: 20060501
  Serious: No
  Sender: FDA-Public Use
  Company Number: S05-USA-04686-01

PATIENT
  Age: 63 Year
  Sex: Female

DRUGS (3)
  1. FLONASE [Suspect]
     Indication: SEASONAL ALLERGY
     Route: 045
     Dates: start: 20050901
  2. LEVOTHROID [Suspect]
     Indication: HYPOTHYROIDISM
     Dosage: 100MCG PER DAY
     Route: 048
     Dates: start: 20050511
  3. ICAPS [Suspect]
     Indication: DRUG USE FOR UNKNOWN INDICATION
     Route: 065

REACTIONS (4)
  - BLOOD CHOLESTEROL INCREASED [None]
  - BLOOD PRESSURE INCREASED [None]
  - MUSCLE SPASMS [None]
  - MUSCLE TWITCHING [None]
